FAERS Safety Report 19739188 (Version 1)
Quarter: 2021Q3

REPORT INFORMATION
  Report Type: Spontaneous
  Country: PE (occurrence: PE)
  Receive Date: 20210823
  Receipt Date: 20210823
  Transmission Date: 20211014
  Serious: Yes (Death)
  Sender: FDA-Public Use
  Company Number: PE-ROCHE-2858276

PATIENT
  Age: 65 Year
  Sex: Male
  Weight: 70 kg

DRUGS (1)
  1. ACTILYSE [Suspect]
     Active Substance: ALTEPLASE
     Indication: CEREBRAL INFARCTION
     Dosage: 0.90 MG/KG TOTAL DOSE: 63 MG DOSAGE FORM? POWDER FOR SOLUTION FOR INJECTION
     Route: 042
     Dates: start: 2015, end: 2015

REACTIONS (2)
  - Multiple organ dysfunction syndrome [Fatal]
  - Anaphylactic reaction [Fatal]

NARRATIVE: CASE EVENT DATE: 2015
